FAERS Safety Report 5978614-7 (Version None)
Quarter: 2008Q4

REPORT INFORMATION
  Report Type: 
  Country: None (occurrence: None)
  Receive Date: 20081204
  Receipt Date: 20080519
  Transmission Date: 20090506
  Serious: No
  Sender: FDA-Public Use
  Company Number: US-BAYER-200814474BCC

PATIENT

DRUGS (1)
  1. ALEVE [Suspect]
     Indication: BACK PAIN
     Dosage: UNIT DOSE: 220 MG

REACTIONS (2)
  - ARTHRALGIA [None]
  - NO ADVERSE EVENT [None]
